FAERS Safety Report 9306748 (Version 6)
Quarter: 2014Q3

REPORT INFORMATION
  Report Type: Report from Study
  Country: US (occurrence: US)
  Receive Date: 20130523
  Receipt Date: 20140903
  Transmission Date: 20150326
  Serious: Yes (Death, Hospitalization, Other)
  Sender: FDA-Public Use
  Company Number: US-ALEXION-A201301058

PATIENT

DRUGS (26)
  1. ACYCLOVIR. [Concomitant]
     Active Substance: ACYCLOVIR
     Indication: PRODUCT USED FOR UNKNOWN INDICATION
     Dosage: 400 MG, BID, PRN
     Route: 048
     Dates: start: 20120509
  2. CHERATUSSIN AC [Concomitant]
     Active Substance: CODEINE PHOSPHATE\GUAIFENESIN
     Indication: COUGH
     Dosage: 100-10 MG/5ML, 1 TSP Q4-6H, PRN
     Route: 048
     Dates: start: 20130110
  3. EXJADE [Concomitant]
     Active Substance: DEFERASIROX
     Dosage: UNK
     Route: 065
     Dates: start: 19950101, end: 20100201
  4. PREDNISONE. [Concomitant]
     Active Substance: PREDNISONE
     Indication: PRODUCT USED FOR UNKNOWN INDICATION
     Dosage: 10 MG, UNK
     Route: 048
     Dates: start: 20130111
  5. TRIAMCINOLONE ACETONIDE. [Concomitant]
     Active Substance: TRIAMCINOLONE ACETONIDE
     Indication: PRODUCT USED FOR UNKNOWN INDICATION
     Dosage: 0.1%, APPLY 2-3XDAY
     Route: 061
     Dates: start: 20120910
  6. SOLIRIS [Suspect]
     Active Substance: ECULIZUMAB
     Indication: PAROXYSMAL NOCTURNAL HAEMOGLOBINURIA
     Dosage: UNK
     Route: 042
     Dates: start: 200708
  7. SULFASALAZINE. [Concomitant]
     Active Substance: SULFASALAZINE
     Indication: PRODUCT USED FOR UNKNOWN INDICATION
     Dosage: 500 MG, TID
     Route: 065
     Dates: start: 19950101
  8. LUTEIN [Concomitant]
     Active Substance: LUTEIN
     Indication: PRODUCT USED FOR UNKNOWN INDICATION
     Dosage: 20 MG, BID
     Route: 065
     Dates: start: 20000101
  9. FOLIC ACID. [Concomitant]
     Active Substance: FOLIC ACID
     Dosage: 1 MG, QD
     Route: 065
     Dates: start: 20120418
  10. POTASSIUM CHLORIDE CRYS ER [Concomitant]
     Indication: PRODUCT USED FOR UNKNOWN INDICATION
     Dosage: 20 MEQ, 2 TABS WITH BREAKFAST + DINNER, 1 TAB WITH LUNCH
     Route: 048
     Dates: start: 20121003
  11. SOLIRIS [Suspect]
     Active Substance: ECULIZUMAB
     Dosage: 900 MG, Q11D
     Dates: start: 20070615
  12. EXJADE [Concomitant]
     Active Substance: DEFERASIROX
     Indication: PRODUCT USED FOR UNKNOWN INDICATION
     Dosage: 500 MG, QID
     Route: 048
     Dates: start: 20130301
  13. SULFASALAZINE. [Concomitant]
     Active Substance: SULFASALAZINE
     Dosage: 1000 MG, TID
     Route: 048
     Dates: start: 20081010
  14. TRIAMCINOLONE ACETONIDE. [Concomitant]
     Active Substance: TRIAMCINOLONE ACETONIDE
     Dosage: 1%, QD
     Route: 061
     Dates: start: 20120919
  15. SOLIRIS [Suspect]
     Active Substance: ECULIZUMAB
     Dosage: 900 MG, Q12D
     Route: 042
     Dates: start: 200807
  16. FOLIC ACID. [Concomitant]
     Active Substance: FOLIC ACID
     Dosage: 1 MG, UNK
     Route: 048
     Dates: start: 20120817
  17. LUTEIN [Concomitant]
     Active Substance: LUTEIN
     Dosage: 20 MG, QD
     Route: 048
     Dates: start: 20110118
  18. PROVENTIL HFA [Concomitant]
     Active Substance: ALBUTEROL SULFATE
     Indication: DYSPNOEA
     Dosage: 2 PUFFS Q6H PRN
     Dates: start: 20130322
  19. SOLIRIS [Suspect]
     Active Substance: ECULIZUMAB
     Dosage: 900 MG, UNK
     Route: 042
     Dates: start: 200810
  20. FUROSEMIDE. [Concomitant]
     Active Substance: FUROSEMIDE
     Indication: PRODUCT USED FOR UNKNOWN INDICATION
     Dosage: 20 MG, QD
     Route: 048
     Dates: start: 20120919
  21. CYANOCOBALAMIN. [Concomitant]
     Active Substance: CYANOCOBALAMIN
     Indication: PRODUCT USED FOR UNKNOWN INDICATION
     Dosage: 1000 MCG/ML, 1ML QMONTH
     Route: 030
  22. FOLIC ACID. [Concomitant]
     Active Substance: FOLIC ACID
     Indication: PRODUCT USED FOR UNKNOWN INDICATION
     Dosage: 400 ?G, BID
     Route: 065
     Dates: start: 19950101, end: 20120419
  23. LEVOFLOXACIN [Concomitant]
     Active Substance: LEVOFLOXACIN
     Indication: PRODUCT USED FOR UNKNOWN INDICATION
     Dosage: 500 MG, QD PRN
     Route: 048
     Dates: start: 20130412
  24. MULTIVITAMIN [Concomitant]
     Active Substance: VITAMINS
     Indication: PRODUCT USED FOR UNKNOWN INDICATION
     Dosage: 1 TAB DAILY
     Route: 048
  25. VITAMIN E [Concomitant]
     Active Substance: .ALPHA.-TOCOPHEROL
     Indication: PRODUCT USED FOR UNKNOWN INDICATION
     Dosage: 1 CAP, QD
     Route: 065
     Dates: start: 19950101
  26. VITAMIN E [Concomitant]
     Active Substance: .ALPHA.-TOCOPHEROL
     Dosage: 2 CAPS, QD
     Route: 048

REACTIONS (10)
  - Iron overload [Unknown]
  - Death [Fatal]
  - Cardiac disorder [Not Recovered/Not Resolved]
  - Fatigue [Recovering/Resolving]
  - Pulmonary embolism [Not Recovered/Not Resolved]
  - Investigation [Not Recovered/Not Resolved]
  - Unevaluable event [Unknown]
  - Anaemia [Unknown]
  - Condition aggravated [Unknown]
  - Dyspnoea [Recovering/Resolving]

NARRATIVE: CASE EVENT DATE: 201210
